FAERS Safety Report 12833093 (Version 1)
Quarter: 2016Q4

REPORT INFORMATION
  Report Type: Spontaneous
  Country: MX (occurrence: MX)
  Receive Date: 20161010
  Receipt Date: 20161010
  Transmission Date: 20170207
  Serious: Yes (Other)
  Sender: FDA-Public Use
  Company Number: MX-AMGEN-MEXSP2016133941

PATIENT

DRUGS (2)
  1. ARANESP [Suspect]
     Active Substance: DARBEPOETIN ALFA
     Indication: PRODUCT USED FOR UNKNOWN INDICATION
     Dosage: 0.75 MUG/KG, QMO
     Route: 065
     Dates: start: 201607
  2. ARANESP [Suspect]
     Active Substance: DARBEPOETIN ALFA
     Dosage: 0.95 MUG/KG, QWK
     Route: 065
     Dates: start: 2016

REACTIONS (4)
  - Haemoglobin decreased [Unknown]
  - Drug dose omission [Unknown]
  - Fatigue [Unknown]
  - Drug ineffective [Unknown]
